FAERS Safety Report 25785009 (Version 1)
Quarter: 2025Q3

REPORT INFORMATION
  Report Type: Spontaneous
  Country: EG (occurrence: EG)
  Receive Date: 20250910
  Receipt Date: 20250910
  Transmission Date: 20251020
  Serious: Yes (Death, Other)
  Sender: SANOFI AVENTIS
  Company Number: EG-SA-2025SA268859

PATIENT
  Age: 66 Year
  Sex: Male

DRUGS (6)
  1. ENOXAPARIN SODIUM [Suspect]
     Active Substance: ENOXAPARIN SODIUM
     Dosage: 80 IU, BID
     Route: 058
     Dates: start: 20250615, end: 20250616
  2. ASPIRIN [Concomitant]
     Active Substance: ASPIRIN
     Dosage: UNK UNK, QD
     Route: 048
  3. WARFARIN SODIUM [Concomitant]
     Active Substance: WARFARIN SODIUM
     Indication: Anticoagulant therapy
     Dosage: 1 MG, QD
     Route: 048
     Dates: start: 20250614
  4. TORSEMIDE [Concomitant]
     Active Substance: TORSEMIDE
     Indication: Polyuria
     Route: 042
     Dates: start: 20250614
  5. LEVOFLOXACIN [Concomitant]
     Active Substance: LEVOFLOXACIN
     Dosage: 750 MG, QD
     Route: 042
     Dates: start: 20250616
  6. CORDARONE [Concomitant]
     Active Substance: AMIODARONE HYDROCHLORIDE
     Indication: Arrhythmia
     Dates: start: 20250615, end: 20250621

REACTIONS (5)
  - Death [Fatal]
  - Haematemesis [Unknown]
  - Anuria [Unknown]
  - Cardiac arrest [Unknown]
  - International normalised ratio increased [Not Recovered/Not Resolved]

NARRATIVE: CASE EVENT DATE: 20250101
